FAERS Safety Report 17411344 (Version 1)
Quarter: 2020Q1

REPORT INFORMATION
  Report Type: Spontaneous
  Country: US (occurrence: US)
  Receive Date: 20200128
  Receipt Date: 20200128
  Transmission Date: 20200409
  Serious: Yes (Hospitalization)
  Sender: FDA-Public Use
  Company Number: None

PATIENT
  Age: 56 Year

DRUGS (16)
  1. NIFEDINE [Concomitant]
  2. FUROSEMIDE. [Concomitant]
     Active Substance: FUROSEMIDE
  3. CALC ACTEATE [Concomitant]
  4. METOLAZONE. [Concomitant]
     Active Substance: METOLAZONE
  5. SEVELAMER [Concomitant]
     Active Substance: SEVELAMER
  6. GENGRAF [Suspect]
     Active Substance: CYCLOSPORINE
     Indication: RENAL TRANSPLANT
     Route: 048
     Dates: start: 20170916
  7. ROSUVASTATIN. [Concomitant]
     Active Substance: ROSUVASTATIN
  8. FAMOTIDINE. [Concomitant]
     Active Substance: FAMOTIDINE
  9. CELLCEPT [Concomitant]
     Active Substance: MYCOPHENOLATE MOFETIL\MYCOPHENOLATE MOFETIL HYDROCHLORIDE
  10. NOVOLOG [Concomitant]
     Active Substance: INSULIN ASPART
  11. TRIANMCINOLON [Concomitant]
  12. CONTOUR [Concomitant]
  13. LANTUS SOL [Concomitant]
  14. METOPROLOL TARTRATE. [Concomitant]
     Active Substance: METOPROLOL TARTRATE
  15. RENVELA [Concomitant]
     Active Substance: SEVELAMER CARBONATE
  16. VITAMIN D [Concomitant]
     Active Substance: VITAMIN D NOS

REACTIONS (1)
  - End stage renal disease [None]
